FAERS Safety Report 7288724-2 (Version None)
Quarter: 2011Q1

REPORT INFORMATION
  Report Type: 
  Country: None (occurrence: None)
  Receive Date: 20110211
  Receipt Date: 20110207
  Transmission Date: 20110831
  Serious: Yes (Death, Hospitalization)
  Sender: FDA-Public Use
  Company Number: PHHY2011JP06247

PATIENT
  Sex: Male
  Weight: 63 kg

DRUGS (10)
  1. NITOROL [Concomitant]
     Dosage: 40 MG, UNK
     Route: 048
     Dates: start: 20090731, end: 20091225
  2. ARTIST [Concomitant]
     Dosage: 10 MG, UNK
     Route: 048
     Dates: start: 20090911, end: 20090928
  3. ALDACTONE [Concomitant]
     Dosage: 25 MG, UNK
     Route: 048
     Dates: start: 20091013, end: 20091225
  4. SUNRYTHM [Concomitant]
     Dosage: 100 MG, UNK
     Route: 048
     Dates: start: 20090731, end: 20091225
  5. ADALAT CC [Concomitant]
     Dosage: 60 MG, UNK
     Route: 048
     Dates: start: 20091028, end: 20091225
  6. NORVASC [Concomitant]
     Dosage: 10 MG, UNK
     Route: 048
     Dates: start: 20090731, end: 20091028
  7. DIOVAN [Suspect]
     Indication: HYPERTENSION
     Dosage: 40 MG,ONCE DAILY
     Route: 048
     Dates: start: 20090731, end: 20090827
  8. DIOVAN [Suspect]
     Dosage: 80 MG, BID
     Route: 048
     Dates: start: 20090828, end: 20091225
  9. LASIX [Concomitant]
     Dosage: 20 MG, UNK
     Route: 048
     Dates: start: 20090731, end: 20091225
  10. PLETAL [Concomitant]
     Dosage: 200 MG, UNK
     Route: 048
     Dates: start: 20090828, end: 20091225

REACTIONS (2)
  - DEATH [None]
  - PNEUMONIA [None]
